FAERS Safety Report 15373627 (Version 9)
Quarter: 2020Q1

REPORT INFORMATION
  Report Type: Spontaneous
  Country: US (occurrence: US)
  Receive Date: 20180912
  Receipt Date: 20200317
  Transmission Date: 20200409
  Serious: Yes (Hospitalization)
  Sender: FDA-Public Use
  Company Number: US-PFIZER INC-2018346970

PATIENT
  Age: 67 Year
  Sex: Female
  Weight: 52 kg

DRUGS (8)
  1. LYRICA [Suspect]
     Active Substance: PREGABALIN
     Indication: PAIN
     Dosage: 75 MG, 3X/DAY
     Route: 048
  2. LYRICA [Suspect]
     Active Substance: PREGABALIN
     Dosage: 100 MG, 3X/DAY
     Route: 048
     Dates: start: 2018, end: 201912
  3. OXYCODONE [Suspect]
     Active Substance: OXYCODONE
     Dosage: 10 MG, 3X/DAY (AS NEEDED)
  4. AMLODIPINE AND VALSARTAN [Concomitant]
     Active Substance: AMLODIPINE\VALSARTAN
     Indication: HYPERTENSION
     Dosage: UNK, 1X/DAY(ONCE A DAY IN THE MORNING)(VALSARTAN-320MG;AMLODIPINE-10 MG)
  5. LYRICA [Suspect]
     Active Substance: PREGABALIN
     Dosage: 75 MG, UNK
  6. LYRICA [Suspect]
     Active Substance: PREGABALIN
     Indication: NECK PAIN
     Dosage: 75 MG, 3X/DAY
     Route: 048
  7. OXYCODONE [Suspect]
     Active Substance: OXYCODONE
     Indication: PAIN
     Dosage: UNK
  8. LYRICA [Suspect]
     Active Substance: PREGABALIN
     Indication: BACK PAIN
     Dosage: 100 MG, UNK

REACTIONS (11)
  - Feeling abnormal [Unknown]
  - Weight abnormal [Unknown]
  - Drug ineffective [Unknown]
  - Urinary tract infection [Unknown]
  - Arthritis [Unknown]
  - Withdrawal syndrome [Unknown]
  - Dysstasia [Unknown]
  - Drug tolerance [Unknown]
  - Tympanic membrane disorder [Unknown]
  - Panic attack [Unknown]
  - Therapeutic response unexpected [Unknown]

NARRATIVE: CASE EVENT DATE: 2017
